FAERS Safety Report 12137912 (Version 6)
Quarter: 2016Q2

REPORT INFORMATION
  Report Type: Spontaneous
  Country: CH (occurrence: CH)
  Receive Date: 20160302
  Receipt Date: 20160519
  Transmission Date: 20160815
  Serious: Yes (Hospitalization)
  Sender: FDA-Public Use
  Company Number: CH-LPDUSPRD-20160184

PATIENT
  Age: 44 Year
  Sex: Female

DRUGS (2)
  1. FERINJECT [Suspect]
     Active Substance: FERRIC CARBOXYMALTOSE
     Dosage: 1000 MG (FIRST DOSE)
     Route: 041
     Dates: start: 20160211, end: 20160211
  2. CARVEDILOL. [Concomitant]
     Active Substance: CARVEDILOL
     Dosage: 12.5 MG, 12.5 MG 1 IN 1 D
     Route: 048

REACTIONS (11)
  - Pain [Unknown]
  - Back pain [Unknown]
  - Arthralgia [Unknown]
  - Musculoskeletal pain [Unknown]
  - Nausea [Unknown]
  - Bone pain [Unknown]
  - Asthenia [Unknown]
  - Hypophosphataemia [Unknown]
  - Respiratory disorder [Unknown]
  - Myalgia [Unknown]
  - Condition aggravated [Unknown]

NARRATIVE: CASE EVENT DATE: 2016
